FAERS Safety Report 13694623 (Version 1)
Quarter: 2017Q2

REPORT INFORMATION
  Report Type: Spontaneous
  Country: US (occurrence: US)
  Receive Date: 20170627
  Receipt Date: 20170627
  Transmission Date: 20170830
  Serious: No
  Sender: FDA-Public Use
  Company Number: US-IPSEN BIOPHARMACEUTICALS, INC.-2016-00084

PATIENT
  Age: 59 Year
  Sex: Female
  Weight: 69 kg

DRUGS (16)
  1. DYSPORT [Suspect]
     Active Substance: ABOBOTULINUMTOXINA
     Indication: PRODUCT USE IN UNAPPROVED INDICATION
  2. VITAMIN B [Concomitant]
     Active Substance: VITAMIN B
  3. DYSPORT [Suspect]
     Active Substance: ABOBOTULINUMTOXINA
     Indication: SKIN WRINKLING
  4. ASPIRIN. [Concomitant]
     Active Substance: ASPIRIN
  5. MULTIVITAMIN [Concomitant]
     Active Substance: VITAMINS
  6. MEDROL [Concomitant]
     Active Substance: METHYLPREDNISOLONE
  7. LOSARTAN. [Concomitant]
     Active Substance: LOSARTAN
  8. DILTIZAEM [Concomitant]
  9. LEVOTHYROXINE. [Concomitant]
     Active Substance: LEVOTHYROXINE
     Indication: HYPOTHYROIDISM
  10. ESCITALOPRAM [Concomitant]
     Active Substance: ESCITALOPRAM OXALATE
  11. FISH OIL [Concomitant]
     Active Substance: FISH OIL
  12. CALCIUM [Concomitant]
     Active Substance: CALCIUM
  13. GLUCOSAMINE [Concomitant]
     Active Substance: GLUCOSAMINE
  14. DYSPORT [Suspect]
     Active Substance: ABOBOTULINUMTOXINA
     Indication: SKIN WRINKLING
     Dosage: 135U
     Route: 065
     Dates: start: 20151218, end: 20151218
  15. DYSPORT [Suspect]
     Active Substance: ABOBOTULINUMTOXINA
     Indication: SKIN WRINKLING
  16. LEXAPRO [Concomitant]
     Active Substance: ESCITALOPRAM OXALATE

REACTIONS (7)
  - Muscular weakness [Recovering/Resolving]
  - Overdose [Unknown]
  - Swelling [Not Recovered/Not Resolved]
  - Dry eye [Unknown]
  - Contusion [Recovered/Resolved]
  - Eye disorder [Unknown]
  - Facial paresis [Recovering/Resolving]

NARRATIVE: CASE EVENT DATE: 201512
